FAERS Safety Report 4369075-2 (Version None)
Quarter: 2004Q2

REPORT INFORMATION
  Report Type: 
  Country: None (occurrence: None)
  Receive Date: 20040527
  Receipt Date: 20040512
  Transmission Date: 20050107
  Serious: Yes (Hospitalization)
  Sender: FDA-Public Use
  Company Number: F01200401105

PATIENT
  Age: 74 Year
  Sex: Female

DRUGS (21)
  1. OXALIPLATIN [Suspect]
     Indication: COLORECTAL CANCER
     Dosage: 85 MG/M2 Q2W INTRAVENOUS NOS
     Route: 042
     Dates: start: 20031114, end: 20031114
  2. FLUOROURACIL [Suspect]
     Dosage: 500 MG/M2 BOLUS ON D1, D8 AND D15, Q4W INTRAVENOUS BOLUS A FEW MINS
     Route: 040
     Dates: start: 20031114, end: 20031114
  3. LEUCOVORIN CALCIUM [Suspect]
     Dosage: 20 MG/M2 ON D1, D8 AND D15 Q4W INTRAVENOUS BOLUS A FEW MINS
     Route: 040
     Dates: start: 20031114, end: 20031114
  4. DOLASETRON MESILATE [Concomitant]
  5. PROCHLORPERAZINE [Concomitant]
  6. DARBEPOETIN DARBEPOETIN ALFA) [Concomitant]
  7. CEFTAZIDIME [Concomitant]
  8. ACETAMINOPHEN [Concomitant]
  9. METRONIDAZOLE [Concomitant]
  10. FILGRASTIM [Concomitant]
  11. POTASSIUM [Concomitant]
  12. DIPHENOXYLATE HYDROCHLORIDE/ATROPINE SULFATE [Concomitant]
  13. LOPERAMIDE HCL (LOPERAMIDE HYDROCHLORIDE) [Concomitant]
  14. TENORMIN [Concomitant]
  15. ROXICET (OXYCODONE/ACETAMINOPHEN) [Concomitant]
  16. LORAZEPAM [Concomitant]
  17. MAGNESIUM SULFATE [Concomitant]
  18. MEPERIDINE HCL [Concomitant]
  19. DEXAMETHASONE SODIUM PHOSPHATE [Concomitant]
  20. POTASSIUM PHOSPHATE (POTASSIUM PHOSPHATE DIBASIC) [Concomitant]
  21. TRAVOPROST AND TIMOLOL [Concomitant]

REACTIONS (18)
  - AORTIC VALVE DISEASE [None]
  - ASTHENIA [None]
  - ATRIAL FIBRILLATION [None]
  - BLOOD POTASSIUM DECREASED [None]
  - BLOOD PRESSURE INCREASED [None]
  - BLOOD THYROID STIMULATING HORMONE DECREASED [None]
  - CREATINE PHOSPHOKINASE DECREASED [None]
  - DIARRHOEA [None]
  - DILATATION ATRIAL [None]
  - ELECTROCARDIOGRAM ST-T CHANGE [None]
  - HAEMOGLOBIN DECREASED [None]
  - MITRAL VALVE INCOMPETENCE [None]
  - NEUTROPENIC INFECTION [None]
  - PULMONARY VALVE INCOMPETENCE [None]
  - SINUS TACHYCARDIA [None]
  - THYROID DISORDER [None]
  - THYROXINE INCREASED [None]
  - TRICUSPID VALVE INCOMPETENCE [None]
